FAERS Safety Report 23255457 (Version 2)
Quarter: 2024Q2

REPORT INFORMATION
  Report Type: Spontaneous
  Country: FR (occurrence: FR)
  Receive Date: 20231203
  Receipt Date: 20240620
  Transmission Date: 20240716
  Serious: Yes (Death)
  Sender: FDA-Public Use
  Company Number: None

PATIENT
  Age: 63 Year
  Sex: Female
  Weight: 40 kg

DRUGS (3)
  1. CYCLOPHOSPHAMIDE [Suspect]
     Active Substance: CYCLOPHOSPHAMIDE
     Indication: Thrombotic microangiopathy
     Dosage: 500.000MG QD
     Route: 042
     Dates: start: 20230316, end: 20230324
  2. SOLIRIS [Suspect]
     Active Substance: ECULIZUMAB
     Indication: Thrombotic microangiopathy
     Dosage: 600.000MG
     Route: 042
     Dates: start: 20230313, end: 20230313
  3. SOLIRIS [Suspect]
     Active Substance: ECULIZUMAB
     Dosage: 900.000MG
     Route: 042
     Dates: start: 20230321, end: 20230321

REACTIONS (1)
  - Stress cardiomyopathy [Fatal]

NARRATIVE: CASE EVENT DATE: 20230324
